FAERS Safety Report 13557279 (Version 1)
Quarter: 2017Q2

REPORT INFORMATION
  Report Type: Spontaneous
  Country: GB (occurrence: GB)
  Receive Date: 20170517
  Receipt Date: 20170517
  Transmission Date: 20170830
  Serious: Yes (Other)
  Sender: FDA-Public Use
  Company Number: GB-PFM-2017-03598

PATIENT

DRUGS (5)
  1. PROPRANOLOL [Suspect]
     Active Substance: PROPRANOLOL HYDROCHLORIDE
     Indication: OFF LABEL USE
  2. PROPRANOLOL [Suspect]
     Active Substance: PROPRANOLOL HYDROCHLORIDE
     Indication: AGGRESSION
     Dosage: 80 MG, QD (1/DAY)
     Route: 048
     Dates: start: 20170227, end: 20170310
  3. PROPRANOLOL [Suspect]
     Active Substance: PROPRANOLOL HYDROCHLORIDE
     Indication: AUTONOMIC NERVOUS SYSTEM IMBALANCE
  4. PERICYAZINE [Concomitant]
     Active Substance: PERICIAZINE
     Indication: PRODUCT USED FOR UNKNOWN INDICATION
     Dosage: 1.25 MG, UNK
     Route: 065
  5. PROPRANOLOL [Suspect]
     Active Substance: PROPRANOLOL HYDROCHLORIDE
     Indication: AGITATION

REACTIONS (5)
  - Abnormal behaviour [Unknown]
  - Product use in unapproved indication [Unknown]
  - Drug administered to patient of inappropriate age [Unknown]
  - Hyperkalaemia [Recovered/Resolved]
  - Off label use [Unknown]
